FAERS Safety Report 23403525 (Version 1)
Quarter: 2024Q1

REPORT INFORMATION
  Report Type: Spontaneous
  Country: US (occurrence: US)
  Receive Date: 20240116
  Receipt Date: 20240116
  Transmission Date: 20240410
  Serious: Yes (Hospitalization)
  Sender: FDA-Public Use
  Company Number: US-SIMILASAN-2024USSIMSPO00001

PATIENT

DRUGS (1)
  1. CONIUM MACULATUM FLOWERING TOP\HOMEOPATHICS\GRAPHITE\SULFUR [Suspect]
     Active Substance: CONIUM MACULATUM FLOWERING TOP\HOMEOPATHICS\GRAPHITE\SULFUR
     Indication: Hordeolum
     Route: 047
     Dates: start: 20231122

REACTIONS (4)
  - Ocular hyperaemia [Unknown]
  - Lacrimation increased [Unknown]
  - Eyelid margin crusting [Unknown]
  - Product use issue [Unknown]
